FAERS Safety Report 4558140-2 (Version None)
Quarter: 2005Q1

REPORT INFORMATION
  Report Type: 
  Country: None (occurrence: None)
  Receive Date: 20050121
  Receipt Date: 20050114
  Transmission Date: 20050727
  Serious: Yes (Life-Threatening)
  Sender: FDA-Public Use
  Company Number: 200510439GDDC

PATIENT
  Age: 56 Year
  Sex: Male

DRUGS (5)
  1. DOLASETRON [Suspect]
     Indication: PROPHYLAXIS OF NAUSEA AND VOMITING
     Route: 042
     Dates: start: 20041004, end: 20041004
  2. VALSARTAN [Concomitant]
     Indication: HYPERTENSION
     Route: 048
  3. PROPOFOL [Concomitant]
  4. FENTANYL [Concomitant]
  5. MIDAZOLAM HCL [Concomitant]

REACTIONS (2)
  - ANAESTHETIC COMPLICATION CARDIAC [None]
  - CARDIAC ARREST [None]
